FAERS Safety Report 4514531-7 (Version None)
Quarter: 2004Q4

REPORT INFORMATION
  Report Type: 
  Country: None (occurrence: None)
  Receive Date: 20040928
  Receipt Date: 20040611
  Transmission Date: 20050328
  Serious: No
  Sender: FDA-Public Use
  Company Number: 04P-163-0263579-00

PATIENT
  Age: 71 Year
  Sex: Female
  Weight: 52.6173 kg

DRUGS (9)
  1. HUMIRA [Suspect]
     Indication: RHEUMATOID ARTHRITIS
     Dosage: 40 MG, 1 IN 2 WK, SUBCUTANEOUS
     Route: 058
     Dates: start: 20031201
  2. ZETIA [Concomitant]
  3. PRAVASTATIN [Concomitant]
  4. LEVOTHYROXINE SODIUM [Concomitant]
  5. MULTI-VITAMINS [Concomitant]
  6. TOCOPHEROL CONCENTRATE CAP [Concomitant]
  7. CALCIUM [Concomitant]
  8. NAPROXEN SODIUM [Concomitant]
  9. ALENDRONATE SODIUM [Concomitant]

REACTIONS (1)
  - INJECTION SITE PAIN [None]
